FAERS Safety Report 18324231 (Version 1)
Quarter: 2020Q3

REPORT INFORMATION
  Report Type: Spontaneous
  Country: HR (occurrence: HR)
  Receive Date: 20200929
  Receipt Date: 20200929
  Transmission Date: 20201103
  Serious: Yes (Other)
  Sender: FDA-Public Use
  Company Number: HR-MYLANLABS-2020M1081279

PATIENT
  Age: 49 Year
  Sex: Male

DRUGS (2)
  1. SUBOXONE [Suspect]
     Active Substance: BUPRENORPHINE HYDROCHLORIDE\NALOXONE HYDROCHLORIDE
     Indication: PRODUCT USED FOR UNKNOWN INDICATION
     Dosage: UNK
     Route: 060
     Dates: start: 202008, end: 202008
  2. PREGABALIN. [Suspect]
     Active Substance: PREGABALIN
     Indication: PRODUCT USED FOR UNKNOWN INDICATION
     Dosage: 4500 MILLIGRAM, QD
     Route: 048
     Dates: start: 20200803, end: 20200803

REACTIONS (5)
  - Intentional overdose [Unknown]
  - Somnolence [Unknown]
  - Brain contusion [Unknown]
  - Coma scale abnormal [Unknown]
  - Suicide attempt [Unknown]

NARRATIVE: CASE EVENT DATE: 202008
